FAERS Safety Report 12069237 (Version 2)
Quarter: 2016Q2

REPORT INFORMATION
  Report Type: Spontaneous
  Country: TR (occurrence: TR)
  Receive Date: 20160211
  Receipt Date: 20160405
  Transmission Date: 20160815
  Serious: Yes (Life-Threatening, Hospitalization)
  Sender: FDA-Public Use
  Company Number: TR-009507513-1602TUR005462

PATIENT
  Age: 7 Year
  Sex: Male
  Weight: 28 kg

DRUGS (1)
  1. PREGNYL [Suspect]
     Active Substance: CHORIOGONADOTROPIN ALFA
     Indication: CRYPTORCHISM
     Dosage: STRENGTH 1500 (UNIT UNKNOWN), ONCE WEEKLY
     Route: 050
     Dates: start: 20150912, end: 20151003

REACTIONS (2)
  - Type 1 diabetes mellitus [Not Recovered/Not Resolved]
  - Urinary incontinence [Recovering/Resolving]

NARRATIVE: CASE EVENT DATE: 20151015
